FAERS Safety Report 5152091-0 (Version None)
Quarter: 2006Q4

REPORT INFORMATION
  Report Type: 
  Country: None (occurrence: None)
  Receive Date: 20061113
  Receipt Date: 20061113
  Transmission Date: 20070319
  Serious: No
  Sender: FDA-Public Use
  Company Number: None

PATIENT
  Age: 71 Year
  Sex: Male
  Weight: 106.5953 kg

DRUGS (14)
  1. VIAGRA [Suspect]
     Indication: ERECTILE DYSFUNCTION
     Dosage: ORAL; 1 TABLET DAILY AS DIRECTED
  2. CLONIDINE [Concomitant]
  3. PAROXETINE HCL [Concomitant]
  4. TOPROL-XL [Concomitant]
  5. CELLCEPT [Concomitant]
  6. PREDNISONE TAB [Concomitant]
  7. GENGRAF [Concomitant]
  8. DILTIAZEM HCL [Concomitant]
  9. RANITIDINE [Concomitant]
  10. HUMULIN 70/30 [Concomitant]
  11. HUMULIN N [Concomitant]
  12. LASIX [Concomitant]
  13. MINOXIDIL [Concomitant]
  14. ZOCOR [Concomitant]

REACTIONS (2)
  - DRUG EFFECT DECREASED [None]
  - PHARMACEUTICAL PRODUCT COMPLAINT [None]
